FAERS Safety Report 4698658-5 (Version None)
Quarter: 2005Q2

REPORT INFORMATION
  Report Type: 
  Country: None (occurrence: None)
  Receive Date: 20050622
  Receipt Date: 20050321
  Transmission Date: 20051028
  Serious: No
  Sender: FDA-Public Use
  Company Number: SU-2005-003369

PATIENT
  Age: 53 Year
  Sex: Female
  Weight: 72.5755 kg

DRUGS (1)
  1. BENICAR HCT [Suspect]
     Indication: HYPERTENSION
     Dosage: 40.25 MG QD PO
     Route: 048
     Dates: start: 20041201, end: 20050321

REACTIONS (3)
  - COUGH [None]
  - HYPERSENSITIVITY [None]
  - NAUSEA [None]
